FAERS Safety Report 20795910 (Version 3)
Quarter: 2022Q2

REPORT INFORMATION
  Report Type: Spontaneous
  Country: JP (occurrence: JP)
  Receive Date: 20220506
  Receipt Date: 20220525
  Transmission Date: 20220721
  Serious: No
  Sender: FDA-Public Use
  Company Number: JP-GLAXOSMITHKLINE-JP2022JPN074576

PATIENT

DRUGS (1)
  1. SOTROVIMAB [Suspect]
     Active Substance: SOTROVIMAB
     Dosage: UNK
     Dates: start: 20220409, end: 20220409

REACTIONS (3)
  - Hypoaesthesia [Unknown]
  - Visual impairment [Unknown]
  - Adverse reaction [Unknown]

NARRATIVE: CASE EVENT DATE: 20220409
